FAERS Safety Report 19898667 (Version 1)
Quarter: 2021Q3

REPORT INFORMATION
  Report Type: Report from Study
  Country: BE (occurrence: BE)
  Receive Date: 20210929
  Receipt Date: 20210929
  Transmission Date: 20211014
  Serious: Yes (Hospitalization)
  Sender: FDA-Public Use
  Company Number: BE-CELGENEUS-BEL-20210906547

PATIENT
  Age: 62 Year
  Sex: Female
  Weight: 97.5 kg

DRUGS (9)
  1. DARATUMUMAB [Suspect]
     Active Substance: DARATUMUMAB
     Indication: PLASMA CELL MYELOMA
     Dosage: 1800 MILLIGRAM
     Route: 058
     Dates: start: 20201218, end: 20210122
  2. VITAMIN D3 [Concomitant]
     Active Substance: CHOLECALCIFEROL
     Indication: IMMUNE ENHANCEMENT THERAPY
     Dosage: 800 IU (INTERNATIONAL UNIT)
     Route: 048
     Dates: start: 202011
  3. PANTOPRAZOLE [Concomitant]
     Active Substance: PANTOPRAZOLE
     Indication: GASTROINTESTINAL DISORDER PROPHYLAXIS
     Dosage: 20 MILLIGRAM
     Route: 048
     Dates: start: 20201211
  4. DEXAMETHASONE. [Suspect]
     Active Substance: DEXAMETHASONE
     Indication: PLASMA CELL MYELOMA
     Dosage: 40 MILLIGRAM
     Route: 048
     Dates: start: 20201218, end: 20210122
  5. BEFACT [Concomitant]
     Indication: HERPES ZOSTER
     Dosage: 1 DOSAGE FORMS
     Route: 048
     Dates: start: 20201127
  6. ASAFLOW [Concomitant]
     Active Substance: ASPIRIN
     Indication: THROMBOSIS PROPHYLAXIS
     Dosage: 80 MILLIGRAM
     Route: 048
     Dates: start: 20201211
  7. PRIMROSE [Concomitant]
     Indication: INFECTION PROPHYLAXIS
     Dosage: 4 DOSAGE FORMS
     Route: 048
     Dates: start: 20201127
  8. POMALIDOMIDE [Suspect]
     Active Substance: POMALIDOMIDE
     Indication: PLASMA CELL MYELOMA
     Dosage: 4 MILLIGRAM
     Route: 048
     Dates: start: 20201218, end: 20210128
  9. VERSATIS [Concomitant]
     Active Substance: LIDOCAINE
     Indication: HERPES ZOSTER
     Route: 061
     Dates: start: 20201211

REACTIONS (1)
  - Gastroenteritis [Recovered/Resolved]

NARRATIVE: CASE EVENT DATE: 20210129
